FAERS Safety Report 9123208 (Version 1)
Quarter: 2013Q1

REPORT INFORMATION
  Report Type: Spontaneous
  Country: JP (occurrence: JP)
  Receive Date: 20130115
  Receipt Date: 20130115
  Transmission Date: 20140127
  Serious: Yes (Other)
  Sender: FDA-Public Use
  Company Number: JP-ASTRAZENECA-2013SE02372

PATIENT
  Sex: 0

DRUGS (3)
  1. BLOPRESS [Suspect]
     Route: 048
     Dates: start: 20121217
  2. PARIET [Concomitant]
     Route: 065
  3. BAYASPIRIN [Concomitant]
     Route: 065

REACTIONS (2)
  - Cerebral infarction [Unknown]
  - Thirst [Unknown]
